FAERS Safety Report 5523828-3 (Version None)
Quarter: 2007Q4

REPORT INFORMATION
  Report Type: 
  Country: None (occurrence: None)
  Receive Date: 20071119
  Receipt Date: 20071102
  Transmission Date: 20080405
  Serious: Yes (Hospitalization)
  Sender: FDA-Public Use
  Company Number: 8027976

PATIENT
  Sex: Male

DRUGS (5)
  1. KEPPRA [Suspect]
     Indication: STATUS EPILEPTICUS
     Dosage: 500 MG 2/D IV
     Route: 042
  2. HALOPERIDOL [Concomitant]
  3. CIPROXIN /00697201/ [Concomitant]
  4. KEPHALOSPORIN [Concomitant]
  5. EPANUTIN /00017402/ [Concomitant]

REACTIONS (2)
  - HOSTILITY [None]
  - PARANOIA [None]
